FAERS Safety Report 5567374-X (Version None)
Quarter: 2007Q4

REPORT INFORMATION
  Report Type: 
  Country: None (occurrence: None)
  Receive Date: 20071214
  Receipt Date: 20071205
  Transmission Date: 20080405
  Serious: Yes (Hospitalization, Other)
  Sender: FDA-Public Use
  Company Number: 2007SP024569

PATIENT
  Age: 79 Year
  Sex: Male

DRUGS (1)
  1. CELESTAMINE TAB [Suspect]
     Indication: DERMATITIS EXFOLIATIVE
     Dosage: PO
     Route: 048
     Dates: start: 20070101

REACTIONS (9)
  - ADRENAL INSUFFICIENCY [None]
  - ANOREXIA [None]
  - CHROMATURIA [None]
  - CYTOMEGALOVIRUS INFECTION [None]
  - HEPATITIS ACUTE [None]
  - HYPONATRAEMIA [None]
  - LIVER DISORDER [None]
  - LYMPHOCYTIC INFILTRATION [None]
  - MALAISE [None]
